FAERS Safety Report 4893461-5 (Version None)
Quarter: 2006Q1

REPORT INFORMATION
  Report Type: 
  Country: None (occurrence: None)
  Receive Date: 20060125
  Receipt Date: 20060125
  Transmission Date: 20060701
  Serious: Yes (Hospitalization, Other)
  Sender: FDA-Public Use
  Company Number: None

PATIENT
  Sex: Male
  Weight: 72.4 kg

DRUGS (6)
  1. TEMODAR [Suspect]
     Indication: OLIGODENDROGLIOMA
     Dosage: SEE IMAGE
     Dates: start: 20051011, end: 20051015
  2. TEMODAR [Suspect]
     Indication: OLIGODENDROGLIOMA
     Dosage: SEE IMAGE
     Dates: start: 20051011
  3. RADIATION [Suspect]
     Dosage: SEE IMAGE
  4. COUMADIN [Concomitant]
  5. KEPPRA [Concomitant]
  6. SEROQUEL [Concomitant]

REACTIONS (9)
  - ABNORMAL BEHAVIOUR [None]
  - APHASIA [None]
  - CONVULSION [None]
  - DEPRESSED LEVEL OF CONSCIOUSNESS [None]
  - DYSPNOEA EXERTIONAL [None]
  - NEOPLASM PROGRESSION [None]
  - OEDEMA PERIPHERAL [None]
  - PAIN [None]
  - PAIN IN EXTREMITY [None]
